FAERS Safety Report 4897874-7 (Version None)
Quarter: 2006Q1

REPORT INFORMATION
  Report Type: 
  Country: None (occurrence: None)
  Receive Date: 20060201
  Receipt Date: 20060125
  Transmission Date: 20060701
  Serious: Yes (Hospitalization)
  Sender: FDA-Public Use
  Company Number: AT-GLAXOSMITHKLINE-B0408468A

PATIENT
  Sex: Male

DRUGS (7)
  1. AUGMENTIN '125' [Suspect]
     Indication: URINARY TRACT INFECTION
     Dosage: 3G PER DAY
     Route: 048
     Dates: start: 20051121, end: 20051205
  2. LEPONEX [Suspect]
     Dates: start: 20051119
  3. SOLIAN [Concomitant]
     Dates: start: 20051104, end: 20051201
  4. CIPRALEX [Concomitant]
     Dates: start: 20051119
  5. NEXIUM [Concomitant]
     Dosage: 40MG PER DAY
     Dates: start: 20051029
  6. AERIUS [Concomitant]
     Dosage: 2TAB PER DAY
     Dates: start: 20051125
  7. ZOLPIDEM TARTRATE [Concomitant]
     Dosage: 10MG PER DAY
     Dates: start: 20051125, end: 20051125

REACTIONS (4)
  - DELIRIUM [None]
  - DISORIENTATION [None]
  - HALLUCINATION, VISUAL [None]
  - RESTLESSNESS [None]
